FAERS Safety Report 11240049 (Version 4)
Quarter: 2015Q4

REPORT INFORMATION
  Report Type: Spontaneous
  Country: US (occurrence: US)
  Receive Date: 20150706
  Receipt Date: 20151105
  Transmission Date: 20160304
  Serious: Yes (Other)
  Sender: FDA-Public Use
  Company Number: US-PFIZER INC-2015220900

PATIENT
  Age: 54 Year
  Sex: Female
  Weight: 52 kg

DRUGS (9)
  1. ZOLOFT [Suspect]
     Active Substance: SERTRALINE HYDROCHLORIDE
     Indication: DEPRESSION
     Dosage: 400 MG, 1X/DAY
     Route: 048
     Dates: start: 199906, end: 201406
  2. ZOLOFT [Suspect]
     Active Substance: SERTRALINE HYDROCHLORIDE
     Indication: PANIC ATTACK
     Dosage: 200 MG, 1X/DAY
     Route: 048
  3. SYNTHROID [Concomitant]
     Active Substance: LEVOTHYROXINE SODIUM
     Dosage: UNK
     Dates: start: 201111
  4. GABAPENTIN. [Concomitant]
     Active Substance: GABAPENTIN
     Dosage: UNK
  5. AMITRIPTYLINE [Concomitant]
     Active Substance: AMITRIPTYLINE
     Dosage: UNK
     Dates: start: 198804
  6. INSULIN [Concomitant]
     Active Substance: INSULIN NOS
     Dosage: UNK
     Dates: start: 197104
  7. ZOLOFT [Suspect]
     Active Substance: SERTRALINE HYDROCHLORIDE
     Indication: ANGER
  8. LOSARTAN. [Concomitant]
     Active Substance: LOSARTAN
     Dosage: UNK
  9. LOSARTAN POTASSIUM. [Concomitant]
     Active Substance: LOSARTAN POTASSIUM
     Dosage: UNK

REACTIONS (15)
  - Diabetes mellitus [Recovered/Resolved]
  - Fibromyalgia [Recovered/Resolved]
  - Abdominal pain upper [Unknown]
  - Eating disorder [Recovered/Resolved]
  - Asthenia [Recovered/Resolved]
  - Anger [Unknown]
  - Muscle spasms [Unknown]
  - Therapeutic response unexpected [Unknown]
  - Bedridden [Recovered/Resolved]
  - Condition aggravated [Recovered/Resolved]
  - Arthritis [Recovered/Resolved]
  - Gastrointestinal disorder [Unknown]
  - Pre-existing condition improved [Unknown]
  - Abdominal discomfort [Not Recovered/Not Resolved]
  - Depression [Recovered/Resolved]

NARRATIVE: CASE EVENT DATE: 201412
